FAERS Safety Report 25288837 (Version 1)
Quarter: 2025Q2

REPORT INFORMATION
  Report Type: Spontaneous
  Country: US (occurrence: None)
  Receive Date: 20250508
  Receipt Date: 20250508
  Transmission Date: 20250717
  Serious: Yes (Other)
  Sender: FDA-CTU
  Company Number: None

PATIENT
  Age: 47 Year
  Sex: Female
  Weight: 60.78 kg

DRUGS (6)
  1. DEPAKOTE [Suspect]
     Active Substance: DIVALPROEX SODIUM
  2. GEODON [Suspect]
     Active Substance: ZIPRASIDONE HYDROCHLORIDE\ZIPRASIDONE MESYLATE
  3. LAMICTAL [Suspect]
     Active Substance: LAMOTRIGINE
  4. INVEGA [Suspect]
     Active Substance: PALIPERIDONE
  5. ASPIRIN [Suspect]
     Active Substance: ASPIRIN
  6. RISPERIDONE [Suspect]
     Active Substance: RISPERIDONE

REACTIONS (9)
  - Glucose-6-phosphate dehydrogenase deficiency [None]
  - Condition aggravated [None]
  - Hepatic steatosis [None]
  - Breast cyst [None]
  - Autoimmune disorder [None]
  - Urticaria [None]
  - Dysarthria [None]
  - Drooling [None]
  - Loss of personal independence in daily activities [None]
